FAERS Safety Report 7576518-X (Version None)
Quarter: 2011Q2

REPORT INFORMATION
  Report Type: 
  Country: None (occurrence: None)
  Receive Date: 20110628
  Receipt Date: 20110607
  Transmission Date: 20111010
  Serious: Yes (Hospitalization, Other)
  Sender: FDA-Public Use
  Company Number: US-BAYER-2011-024880

PATIENT
  Age: 28 Year
  Sex: Female
  Weight: 72.562 kg

DRUGS (2)
  1. YASMIN [Suspect]
     Indication: CONTRACEPTION
     Dosage: UNK
     Dates: start: 20060101, end: 20070101
  2. MULTI-VITAMIN [Concomitant]
     Dosage: QD
     Route: 048

REACTIONS (5)
  - PAIN [None]
  - GALLBLADDER PERFORATION [None]
  - GALLBLADDER DISORDER [None]
  - INJURY [None]
  - GASTROINTESTINAL DISORDER [None]
